FAERS Safety Report 8477562-0 (Version None)
Quarter: 2012Q2

REPORT INFORMATION
  Report Type: 
  Country: None (occurrence: None)
  Receive Date: 20120629
  Receipt Date: 20120627
  Transmission Date: 20120825
  Serious: Yes (Other)
  Sender: FDA-Public Use
  Company Number: PHFR2012IE001414

PATIENT
  Sex: Female
  Weight: 86 kg

DRUGS (9)
  1. KWELLS [Concomitant]
     Indication: SALIVARY HYPERSECRETION
     Dosage: 300 MG, QD
     Route: 048
  2. AMISULPRIDE [Suspect]
     Dosage: 200 MG, (REDUCED BY 200 MG)
     Dates: start: 20120227
  3. LIPITOR [Concomitant]
     Indication: BLOOD CHOLESTEROL INCREASED
     Dosage: 20 MG, DAILY NOCTE
     Route: 048
  4. CLOZARIL [Suspect]
     Indication: SCHIZOPHRENIA
     Dosage: 600 MG, (250 MG MANE AND 350 MG NOCTE)
     Route: 048
     Dates: start: 20110331
  5. AMISULPRIDE [Suspect]
     Dosage: 200 MG, QD
     Dates: start: 20120301
  6. VALPROATE SODIUM [Concomitant]
     Indication: AFFECTIVE DISORDER
     Dosage: 500 MG, DAILY NOCTE
     Route: 048
  7. AMISULPRIDE [Suspect]
     Indication: PSYCHOTIC DISORDER
     Dosage: 200 MG, MANE
  8. NU-SEALS ASPIRIN [Concomitant]
     Dosage: 75 MG, DAILY MANE
     Route: 048
  9. NEXIUM [Concomitant]
     Indication: GASTRITIS
     Dosage: 40 MG, DAILY MANE
     Route: 048

REACTIONS (8)
  - ARTHRITIS [None]
  - BLOOD PROLACTIN INCREASED [None]
  - VEIN DISORDER [None]
  - CHRONIC OBSTRUCTIVE PULMONARY DISEASE [None]
  - GASTRITIS [None]
  - BLOOD CREATINE PHOSPHOKINASE INCREASED [None]
  - PAIN IN EXTREMITY [None]
  - BLOOD CHOLESTEROL INCREASED [None]
